FAERS Safety Report 20822271 (Version 1)
Quarter: 2022Q2

REPORT INFORMATION
  Report Type: Spontaneous
  Country: US (occurrence: US)
  Receive Date: 20220512
  Receipt Date: 20220512
  Transmission Date: 20220721
  Serious: No
  Sender: FDA-Public Use
  Company Number: US-PFIZER INC-2021255907

PATIENT
  Age: 78 Year
  Sex: Female
  Weight: 57.61 kg

DRUGS (3)
  1. PREMPRO [Suspect]
     Active Substance: ESTROGENS, CONJUGATED\MEDROXYPROGESTERONE ACETATE
     Indication: Bone density abnormal
     Dosage: UNK
     Dates: end: 20211231
  2. PREMPRO [Suspect]
     Active Substance: ESTROGENS, CONJUGATED\MEDROXYPROGESTERONE ACETATE
     Indication: Bone disorder
  3. XANAX [Suspect]
     Active Substance: ALPRAZOLAM
     Indication: Panic attack
     Dosage: UNK

REACTIONS (5)
  - Fall [Unknown]
  - Body height decreased [Unknown]
  - Anxiety [Unknown]
  - Emotional disorder [Unknown]
  - Product prescribing issue [Unknown]
